FAERS Safety Report 5513446-5 (Version None)
Quarter: 2007Q4

REPORT INFORMATION
  Report Type: 
  Country: None (occurrence: None)
  Receive Date: 20071108
  Receipt Date: 20071024
  Transmission Date: 20080405
  Serious: Yes (Hospitalization)
  Sender: FDA-Public Use
  Company Number: MEDI-0006016

PATIENT
  Age: 5 Month
  Sex: Male
  Weight: 6.05 kg

DRUGS (5)
  1. SYNAGIS [Suspect]
     Indication: ANTIVIRAL PROPHYLAXIS
     Dosage: 15 MG/KG INTRAMUSCULAR
     Route: 030
     Dates: start: 20061027, end: 20061027
  2. SYNAGIS [Suspect]
     Indication: ANTIVIRAL PROPHYLAXIS
     Dosage: 15 MG/KG INTRAMUSCULAR
     Route: 030
     Dates: start: 20070301, end: 20070301
  3. SYNAGIS [Suspect]
     Indication: ANTIVIRAL PROPHYLAXIS
     Dosage: 15 MG/KG INTRAMUSCULAR
     Route: 030
     Dates: start: 20061123
  4. SYNAGIS [Suspect]
     Indication: ANTIVIRAL PROPHYLAXIS
     Dosage: 15 MG/KG INTRAMUSCULAR
     Route: 030
     Dates: start: 20061228
  5. SYNAGIS [Suspect]
     Indication: ANTIVIRAL PROPHYLAXIS
     Dosage: 15 MG/KG INTRAMUSCULAR
     Route: 030
     Dates: start: 20070125

REACTIONS (1)
  - RESPIRATORY TRACT INFECTION [None]
